FAERS Safety Report 18135303 (Version 1)
Quarter: 2020Q3

REPORT INFORMATION
  Report Type: Spontaneous
  Country: US (occurrence: US)
  Receive Date: 20200810
  Receipt Date: 20200810
  Transmission Date: 20201103
  Serious: Yes (Hospitalization)
  Sender: FDA-Public Use
  Company Number: None

PATIENT
  Age: 67 Year
  Sex: Male

DRUGS (19)
  1. LASIX [Concomitant]
     Active Substance: FUROSEMIDE
  2. ASPIRIN. [Concomitant]
     Active Substance: ASPIRIN
  3. GLUCOSAMINE [Concomitant]
     Active Substance: GLUCOSAMINE
  4. ZOCOR [Concomitant]
     Active Substance: SIMVASTATIN
  5. ALDACTONE [Concomitant]
     Active Substance: SPIRONOLACTONE
  6. ALLERGA?D [Concomitant]
  7. MAGNESIUM [Concomitant]
     Active Substance: MAGNESIUM
  8. LOPRESSOR [Concomitant]
     Active Substance: METOPROLOL TARTRATE
  9. MECLIZINE [Concomitant]
     Active Substance: MECLIZINE HYDROCHLORIDE
  10. MULTI VITAMIN [Concomitant]
     Active Substance: VITAMINS
  11. ALLOPURINOL. [Concomitant]
     Active Substance: ALLOPURINOL
  12. FISH OIL [Concomitant]
     Active Substance: FISH OIL
  13. VITAMIN B12 [Concomitant]
     Active Substance: CYANOCOBALAMIN
  14. LISINOPRIL. [Concomitant]
     Active Substance: LISINOPRIL
  15. VITAMIN D3 [Concomitant]
     Active Substance: CHOLECALCIFEROL
  16. SILDENAFIL 20MG [Suspect]
     Active Substance: SILDENAFIL
     Indication: HYPERTENSION
     Route: 048
     Dates: start: 201508
  17. ACETAMINOPHN [Concomitant]
  18. COLCRYS [Concomitant]
     Active Substance: COLCHICINE
  19. WARFARIN [Concomitant]
     Active Substance: WARFARIN

REACTIONS (3)
  - Rectal ulcer haemorrhage [None]
  - Sepsis [None]
  - Lung disorder [None]

NARRATIVE: CASE EVENT DATE: 20200704
